FAERS Safety Report 4713962-X (Version None)
Quarter: 2005Q3

REPORT INFORMATION
  Report Type: 
  Country: None (occurrence: None)
  Receive Date: 20050713
  Receipt Date: 20050627
  Transmission Date: 20060218
  Serious: Yes (Hospitalization)
  Sender: FDA-Public Use
  Company Number: 2005BI005501

PATIENT
  Age: 44 Year
  Sex: Female

DRUGS (7)
  1. AVONEX [Suspect]
     Indication: MULTIPLE SCLEROSIS
     Dosage: 30 UG;QW;IM
     Route: 030
     Dates: start: 20030827
  2. AVONEX [Suspect]
     Dosage: 30 UG;QW;IM
     Route: 030
     Dates: start: 20030528, end: 20030820
  3. DILANTIN [Concomitant]
  4. ZOLOFT [Concomitant]
  5. ATARAX [Concomitant]
  6. ALLEGRA [Concomitant]
  7. DARVOCET-N 100 [Concomitant]

REACTIONS (5)
  - CONTUSION [None]
  - CONVULSION [None]
  - FALL [None]
  - HYPOAESTHESIA [None]
  - LIMB INJURY [None]
